FAERS Safety Report 10639056 (Version 1)
Quarter: 2014Q4

REPORT INFORMATION
  Report Type: Spontaneous
  Country: US (occurrence: US)
  Receive Date: 20141208
  Receipt Date: 20141208
  Transmission Date: 20150529
  Serious: No
  Sender: FDA-Public Use
  Company Number: US-BAYER-2014-180258

PATIENT
  Age: 83 Year
  Sex: Female
  Weight: 63.49 kg

DRUGS (7)
  1. ATORVASTATIN [Concomitant]
     Active Substance: ATORVASTATIN
  2. LOSARTAN [Concomitant]
     Active Substance: LOSARTAN
  3. SPIRIVA [Concomitant]
     Active Substance: TIOTROPIUM BROMIDE MONOHYDRATE
  4. AMLODIPINE [Concomitant]
     Active Substance: AMLODIPINE BESYLATE
  5. ALEVE [Suspect]
     Active Substance: NAPROXEN SODIUM
     Indication: ARTHRITIS
     Dosage: 1 DF, BID
     Route: 048
  6. ALEVE PM [Suspect]
     Active Substance: DIPHENHYDRAMINE HYDROCHLORIDE\NAPROXEN SODIUM
     Indication: SLEEP DISORDER THERAPY
     Dosage: 2 DF, QD
     Route: 048
     Dates: start: 201409
  7. INSULIN [Concomitant]
     Active Substance: INSULIN NOS
     Dosage: 4 SHOTS DAILY

REACTIONS (4)
  - Incorrect drug administration duration [Unknown]
  - Incorrect drug administration duration [Unknown]
  - Extra dose administered [Unknown]
  - Medication error [Unknown]

NARRATIVE: CASE EVENT DATE: 201409
